FAERS Safety Report 8052343-0 (Version None)
Quarter: 2012Q1

REPORT INFORMATION
  Report Type: 
  Country: None (occurrence: None)
  Receive Date: 20120118
  Receipt Date: 20120112
  Transmission Date: 20120608
  Serious: Yes (Death, Hospitalization)
  Sender: FDA-Public Use
  Company Number: GR-SANOFI-AVENTIS-2011SA027421

PATIENT
  Age: 71 Year
  Sex: Male
  Weight: 77 kg

DRUGS (11)
  1. MEGA-CALCIUM [Concomitant]
  2. MAGNESIUM [Concomitant]
  3. MEDROL [Concomitant]
  4. RESOFERON [Concomitant]
  5. ONE-ALPHA [Concomitant]
  6. CABAZITAXEL [Suspect]
     Indication: PROSTATE CANCER
     Route: 042
     Dates: start: 20110414, end: 20110414
  7. CERTICAN [Concomitant]
  8. TAMSULOSIN HCL [Concomitant]
  9. ARANESP [Concomitant]
  10. ESOMEPRAZOLE SODIUM [Concomitant]
  11. PREDNISOLONE [Suspect]
     Indication: PROSTATE CANCER
     Route: 048

REACTIONS (3)
  - RENAL FAILURE [None]
  - PANCYTOPENIA [None]
  - PULMONARY OEDEMA [None]
